FAERS Safety Report 4526277-X (Version None)
Quarter: 2004Q4

REPORT INFORMATION
  Report Type: 
  Country: None (occurrence: None)
  Receive Date: 20041214
  Receipt Date: 19981125
  Transmission Date: 20050328
  Serious: Yes (Hospitalization, Other)
  Sender: FDA-Public Use
  Company Number: JP-SOLVAY-00302000385

PATIENT
  Age: 839 Month
  Sex: Male
  Weight: 42.3 kg

DRUGS (3)
  1. LOPEMIN [Concomitant]
     Indication: DIARRHOEA
     Dosage: DAILY DOSE: 2 MILLIGRAM(S)
     Route: 048
     Dates: start: 19971204, end: 19971214
  2. CREON [Suspect]
     Indication: PANCREATIC NEOPLASM
     Dosage: DAILY DOSE: 3 G. FREQUENCY:UNKNOWN
     Route: 048
     Dates: start: 19971201, end: 19971208
  3. MITOMYCIN C [Concomitant]
     Indication: ILL-DEFINED DISORDER
     Dosage: DAILY DOSE: 4 MG. FREQUENCY:UNKNOWN
     Route: 042
     Dates: start: 19971020

REACTIONS (6)
  - ANXIETY [None]
  - MALAISE [None]
  - METASTASES TO CENTRAL NERVOUS SYSTEM [None]
  - METASTASES TO LIVER [None]
  - NAUSEA [None]
  - VOMITING [None]
